FAERS Safety Report 7453798-2 (Version None)
Quarter: 2011Q2

REPORT INFORMATION
  Report Type: 
  Country: None (occurrence: None)
  Receive Date: 20110502
  Receipt Date: 20110121
  Transmission Date: 20111010
  Serious: No
  Sender: FDA-Public Use
  Company Number: US-ASTRAZENECA-2011SE04240

PATIENT
  Age: 46 Year
  Sex: Female

DRUGS (2)
  1. SEROQUEL [Concomitant]
  2. NEXIUM [Suspect]
     Route: 048

REACTIONS (3)
  - DYSURIA [None]
  - DRUG INEFFECTIVE [None]
  - ODYNOPHAGIA [None]
